FAERS Safety Report 18107970 (Version 3)
Quarter: 2020Q4

REPORT INFORMATION
  Report Type: Report from Study
  Country: US (occurrence: US)
  Receive Date: 20200803
  Receipt Date: 20201001
  Transmission Date: 20210113
  Serious: Yes (Hospitalization, Other)
  Sender: FDA-Public Use
  Company Number: US-EXELIXIS-XL18420031504

PATIENT

DRUGS (20)
  1. IPILIMUMAB [Suspect]
     Active Substance: IPILIMUMAB
     Indication: PENILE CANCER
     Dosage: 1 MG/KG ON DAY 1 (CYCLE 21 DAYS FOR CYCLE 1 TO 4)
     Route: 042
     Dates: start: 20200219
  2. MIDAMOR [Concomitant]
     Active Substance: AMILORIDE HYDROCHLORIDE
  3. DIPHENHYDRAMIN [Concomitant]
     Active Substance: DIPHENHYDRAMINE
  4. LOVASTATIN. [Concomitant]
     Active Substance: LOVASTATIN
  5. ACETAMINOPHEN. [Concomitant]
     Active Substance: ACETAMINOPHEN
  6. ONDANSETRON [Concomitant]
     Active Substance: ONDANSETRON
  7. IPILIMUMAB [Suspect]
     Active Substance: IPILIMUMAB
     Dosage: 1 MG/KG ON DAY 1 (CYCLE 21 DAYS FOR CYCLE 1 TO 4)
     Route: 042
     Dates: start: 20200422
  8. ASPIRIN. [Concomitant]
     Active Substance: ASPIRIN
  9. LIDOCAINE. [Concomitant]
     Active Substance: LIDOCAINE
  10. MAGNESIUM OXIDE. [Concomitant]
     Active Substance: MAGNESIUM OXIDE
  11. OMEPRAZOLE. [Concomitant]
     Active Substance: OMEPRAZOLE
  12. AMOXICILLIN. [Concomitant]
     Active Substance: AMOXICILLIN
  13. FLUTICASONE PROPIONATE. [Concomitant]
     Active Substance: FLUTICASONE PROPIONATE
  14. XL184 [Suspect]
     Active Substance: CABOZANTINIB
     Indication: PENILE CANCER
     Dosage: 40 MG, QD
     Route: 048
     Dates: start: 20200219, end: 20200422
  15. ALBUTEROL HFA [Concomitant]
     Active Substance: ALBUTEROL SULFATE
  16. APIXABAN [Concomitant]
     Active Substance: APIXABAN
  17. QVAR [Concomitant]
     Active Substance: BECLOMETHASONE DIPROPIONATE
  18. NIVOLUMAB [Suspect]
     Active Substance: NIVOLUMAB
     Indication: PENILE CANCER
     Dosage: 3 MG/KG ON DAY 1  (CYCLE 21 DAYS FOR CYCLE 1 TO 4)
     Route: 042
     Dates: start: 20200219
  19. PROCHLORPERAZINE. [Concomitant]
     Active Substance: PROCHLORPERAZINE
  20. NIVOLUMAB [Suspect]
     Active Substance: NIVOLUMAB
     Dosage: 3 MG/KG ON DAY 1  (CYCLE 21 DAYS FOR CYCLE 1 TO 4)
     Route: 042
     Dates: start: 20200422

REACTIONS (4)
  - Stomatitis [Unknown]
  - Amylase increased [Unknown]
  - Lipase increased [Unknown]
  - Nausea [Recovered/Resolved]

NARRATIVE: CASE EVENT DATE: 20200422
